FAERS Safety Report 9877757 (Version 2)
Quarter: 2014Q1

REPORT INFORMATION
  Report Type: Other
  Country: US (occurrence: US)
  Receive Date: 20140206
  Receipt Date: 20140206
  Transmission Date: 20141002
  Serious: No
  Sender: FDA-Public Use
  Company Number: US-ACORDA-ACO_38794_2013

PATIENT
  Sex: 0

DRUGS (2)
  1. AMPYRA [Suspect]
     Indication: PRODUCT USED FOR UNKNOWN INDICATION
     Dosage: 10 MG, QD
     Route: 065
  2. AMPYRA [Suspect]
     Dosage: 10 MG, BID
     Route: 065

REACTIONS (3)
  - Allergic sinusitis [Unknown]
  - Dizziness [Unknown]
  - Balance disorder [Unknown]
